FAERS Safety Report 14603445 (Version 2)
Quarter: 2018Q2

REPORT INFORMATION
  Report Type: Spontaneous
  Country: PL (occurrence: PL)
  Receive Date: 20180306
  Receipt Date: 20180627
  Transmission Date: 20180711
  Serious: Yes (Hospitalization, Other)
  Sender: FDA-Public Use
  Company Number: PHHY2018PL036744

PATIENT
  Age: 9 Year
  Sex: Female

DRUGS (2)
  1. AZITHROMYCIN ANHYDROUS. [Suspect]
     Active Substance: AZITHROMYCIN ANHYDROUS
     Indication: PRODUCT USED FOR UNKNOWN INDICATION
     Route: 065
  2. AMOXICILLIN AND CLAVULANATE POTASSIUM [Suspect]
     Active Substance: AMOXICILLIN\CLAVULANATE POTASSIUM
     Indication: PRODUCT USED FOR UNKNOWN INDICATION
     Dosage: 2 DF, (2 UG/LITRE)
     Route: 065

REACTIONS (19)
  - Inflammation [Unknown]
  - Asthenia [Unknown]
  - General physical health deterioration [Unknown]
  - Hyponatraemia [Recovered/Resolved]
  - Empyema [Unknown]
  - Renal failure [Unknown]
  - Dyspnoea [Unknown]
  - Hypokalaemia [Recovered/Resolved]
  - Chest pain [Unknown]
  - Drug ineffective [Unknown]
  - Lung infiltration [Unknown]
  - Pneumonia pneumococcal [Recovering/Resolving]
  - Cough [Unknown]
  - Dry mouth [Unknown]
  - Tachypnoea [Unknown]
  - Breath sounds abnormal [Unknown]
  - Mobility decreased [Unknown]
  - Myalgia [Unknown]
  - Atelectasis [Recovering/Resolving]
